FAERS Safety Report 11493634 (Version 1)
Quarter: 2015Q3

REPORT INFORMATION
  Report Type: Spontaneous
  Country: IT (occurrence: IT)
  Receive Date: 20150911
  Receipt Date: 20150911
  Transmission Date: 20151125
  Serious: Yes (Life-Threatening, Hospitalization)
  Sender: FDA-Public Use
  Company Number: IT-ACCORD-033539

PATIENT
  Age: 27 Year
  Sex: Female

DRUGS (7)
  1. QUETIAPINE [Suspect]
     Active Substance: QUETIAPINE
     Route: 048
     Dates: start: 20140909, end: 20140909
  2. LORAZEPAM. [Suspect]
     Active Substance: LORAZEPAM
     Route: 048
     Dates: start: 20140909, end: 20140909
  3. TRIFLUOPERAZINE [Suspect]
     Active Substance: TRIFLUOPERAZINE\TRIFLUOPERAZINE HYDROCHLORIDE
     Route: 048
     Dates: start: 20140909, end: 20140909
  4. LITHIUM. [Suspect]
     Active Substance: LITHIUM
     Dosage: STRENGTH: 300 MG
     Route: 048
     Dates: start: 20140909, end: 20140909
  5. CLONAZEPAM. [Suspect]
     Active Substance: CLONAZEPAM
     Route: 048
     Dates: start: 20140909, end: 20140909
  6. STILNOX [Suspect]
     Active Substance: ZOLPIDEM TARTRATE
     Dosage: STRENGTH: 10 MG
     Route: 048
     Dates: start: 20140909, end: 20140909
  7. TIZANIDINE. [Suspect]
     Active Substance: TIZANIDINE
     Route: 048
     Dates: start: 20140909, end: 20140909

REACTIONS (2)
  - Loss of consciousness [Unknown]
  - Drug abuse [Unknown]

NARRATIVE: CASE EVENT DATE: 20140909
